FAERS Safety Report 13262037 (Version 3)
Quarter: 2017Q2

REPORT INFORMATION
  Report Type: Spontaneous
  Country: US (occurrence: US)
  Receive Date: 20170222
  Receipt Date: 20170412
  Transmission Date: 20170830
  Serious: Yes (Other)
  Sender: FDA-Public Use
  Company Number: US-LUNDBECK-DKLU2023386

PATIENT
  Sex: Male

DRUGS (2)
  1. NORTHERA [Suspect]
     Active Substance: DROXIDOPA
     Route: 048
     Dates: start: 20161129
  2. NORTHERA [Suspect]
     Active Substance: DROXIDOPA
     Indication: SYNCOPE
     Route: 048
     Dates: start: 201606

REACTIONS (7)
  - Drug intolerance [Unknown]
  - Nausea [Recovered/Resolved]
  - Bradycardia [Unknown]
  - Drug ineffective [Unknown]
  - Dizziness [Unknown]
  - Presyncope [Unknown]
  - Blood pressure increased [Unknown]
